FAERS Safety Report 6432968-6 (Version None)
Quarter: 2009Q4

REPORT INFORMATION
  Report Type: 
  Country: None (occurrence: None)
  Receive Date: 20091109
  Receipt Date: 20091027
  Transmission Date: 20100525
  Serious: Yes (Hospitalization)
  Sender: FDA-Public Use
  Company Number: GR-ELI_LILLY_AND_COMPANY-GR200905000987

PATIENT
  Age: 58 Year
  Sex: Male

DRUGS (3)
  1. CIALIS [Suspect]
     Indication: ERECTILE DYSFUNCTION
     Dosage: 20 MG, WEEKLY (1/W)
     Route: 048
     Dates: start: 20070101, end: 20090301
  2. VIAGRA [Concomitant]
     Dosage: UNK, OCCASIONALLY, WHEN OFF CIALIS
     Dates: start: 20070101
  3. ANTIHYPERTENSIVES [Concomitant]
     Dosage: UNK, UNKNOWN

REACTIONS (1)
  - CEREBRAL INFARCTION [None]
